FAERS Safety Report 8414807-7 (Version None)
Quarter: 2012Q2

REPORT INFORMATION
  Report Type: 
  Country: None (occurrence: None)
  Receive Date: 20120606
  Receipt Date: 20120601
  Transmission Date: 20120825
  Serious: Yes (Hospitalization)
  Sender: FDA-Public Use
  Company Number: US-BIOGENIDEC-2012BI005668

PATIENT
  Age: 64 Year
  Sex: Female

DRUGS (3)
  1. BLOOD THINNER (NOS) [Concomitant]
     Indication: THROMBOSIS PROPHYLAXIS
     Route: 048
     Dates: start: 20111210, end: 20111217
  2. AVONEX [Suspect]
     Indication: MULTIPLE SCLEROSIS
     Route: 030
     Dates: start: 20011011, end: 20030101
  3. AVONEX [Suspect]
     Route: 030
     Dates: start: 20030101

REACTIONS (6)
  - TUMOUR RUPTURE [None]
  - OPTIC NERVE INJURY [None]
  - INTRACRANIAL ANEURYSM [None]
  - VIITH NERVE INJURY [None]
  - FACIAL BONES FRACTURE [None]
  - FALL [None]
